FAERS Safety Report 13835021 (Version 1)
Quarter: 2017Q3

REPORT INFORMATION
  Report Type: Spontaneous
  Country: SN (occurrence: SN)
  Receive Date: 20170804
  Receipt Date: 20170804
  Transmission Date: 20171127
  Serious: Yes (Death)
  Sender: FDA-Public Use
  Company Number: SN-PFIZER INC-2017335942

PATIENT
  Age: 32 Year
  Sex: Male

DRUGS (1)
  1. SUTENT [Suspect]
     Active Substance: SUNITINIB MALATE
     Indication: RENAL CELL CARCINOMA
     Dosage: 50 MG, 1X/DAY (FOR 4 WEEKS AND 2 WEEKS THERAPEUTIC WINDOW)
     Route: 048
     Dates: start: 20170328

REACTIONS (1)
  - Death [Fatal]

NARRATIVE: CASE EVENT DATE: 20170601
